FAERS Safety Report 24124864 (Version 1)
Quarter: 2024Q3

REPORT INFORMATION
  Report Type: Spontaneous
  Country: US (occurrence: US)
  Receive Date: 20240723
  Receipt Date: 20240723
  Transmission Date: 20241017
  Serious: No
  Sender: ROCHE
  Company Number: US-ROCHE-10000032692

PATIENT
  Age: 66 Year
  Sex: Male

DRUGS (1)
  1. ACTEMRA [Suspect]
     Active Substance: TOCILIZUMAB
     Indication: Ectopic pregnancy
     Dosage: STRENGTH: 162MG/0.9ML
     Route: 058

REACTIONS (3)
  - Upper respiratory tract infection [Unknown]
  - Injection site reaction [Unknown]
  - Injection site erythema [Unknown]
